FAERS Safety Report 9765146 (Version 1)
Quarter: 2013Q4

REPORT INFORMATION
  Report Type: Spontaneous
  Country: US (occurrence: None)
  Receive Date: 20131213
  Receipt Date: 20131213
  Transmission Date: 20140711
  Serious: Yes (Other)
  Sender: FDA-Public Use
  Company Number: 2013SA032483

PATIENT
  Age: 51 Year
  Sex: Female

DRUGS (1)
  1. MENTHOL [Suspect]
     Indication: PRODUCT USED FOR UNKNOWN INDICATION
     Route: 061
     Dates: start: 20110723

REACTIONS (4)
  - Thermal burn [None]
  - Multiple injuries [None]
  - Chemical injury [None]
  - Impaired work ability [None]
